FAERS Safety Report 14868254 (Version 2)
Quarter: 2018Q3

REPORT INFORMATION
  Report Type: Spontaneous
  Country: NZ (occurrence: AU)
  Receive Date: 20180509
  Receipt Date: 20180802
  Transmission Date: 20181010
  Serious: Yes (Death, Other)
  Sender: FDA-Public Use
  Company Number: NZ-BRISTOL-MYERS SQUIBB COMPANY-BMS-2018-034829

PATIENT
  Age: 74 Year
  Sex: Male

DRUGS (2)
  1. NIVOLUMAB [Suspect]
     Active Substance: NIVOLUMAB
     Indication: SQUAMOUS CELL CARCINOMA OF HEAD AND NECK
     Route: 065
  2. NIVOLUMAB [Suspect]
     Active Substance: NIVOLUMAB
     Indication: NON-SMALL CELL LUNG CANCER
     Dosage: 3 MG/KG, Q2WK
     Route: 042
     Dates: start: 20180410

REACTIONS (8)
  - Confusional state [Unknown]
  - Sedation [Unknown]
  - Agitation [Unknown]
  - Aggression [Unknown]
  - Hypersensitivity [Unknown]
  - Death [Fatal]
  - Hallucination [Unknown]
  - Incontinence [Unknown]

NARRATIVE: CASE EVENT DATE: 20180412
